FAERS Safety Report 5339988-3 (Version None)
Quarter: 2007Q2

REPORT INFORMATION
  Report Type: 
  Country: None (occurrence: None)
  Receive Date: 20070529
  Receipt Date: 20070518
  Transmission Date: 20071010
  Serious: Yes (Other)
  Sender: FDA-Public Use
  Company Number: 380001M07USA

PATIENT
  Age: 35 Year
  Sex: Female

DRUGS (1)
  1. CRINONE [Suspect]
     Indication: INFERTILITY
     Dosage: 1 APPLICATORFULL, 1 IN 1 DAYS
     Dates: start: 20050902, end: 20051001

REACTIONS (2)
  - DRUG EXPOSURE DURING PREGNANCY [None]
  - RENAL CELL CARCINOMA STAGE UNSPECIFIED [None]
